FAERS Safety Report 5972886-0 (Version None)
Quarter: 2008Q4

REPORT INFORMATION
  Report Type: 
  Country: None (occurrence: None)
  Receive Date: 20081201
  Receipt Date: 20081124
  Transmission Date: 20090506
  Serious: Yes (Other)
  Sender: FDA-Public Use
  Company Number: FR-AMGEN-UK258244

PATIENT
  Sex: Female
  Weight: 64.5 kg

DRUGS (7)
  1. ARANESP [Suspect]
     Indication: RENAL FAILURE CHRONIC
     Route: 058
     Dates: start: 20051019, end: 20071206
  2. AVANDIA [Concomitant]
     Route: 065
     Dates: start: 20030607
  3. NOVONORM [Concomitant]
     Route: 065
     Dates: start: 20030610
  4. TRIATEC [Concomitant]
     Route: 065
     Dates: start: 19980605
  5. EURELIX [Concomitant]
     Route: 065
     Dates: start: 20050330
  6. ASPEGIC 325 [Concomitant]
     Route: 065
     Dates: start: 20030710
  7. RIVOTRIL [Concomitant]
     Route: 065
     Dates: start: 20030610

REACTIONS (3)
  - CONJUNCTIVAL HAEMORRHAGE [None]
  - LIPIDS ABNORMAL [None]
  - PAIN [None]
